FAERS Safety Report 23623360 (Version 1)
Quarter: 2024Q1

REPORT INFORMATION
  Report Type: Report from Study
  Country: CA (occurrence: CA)
  Receive Date: 20240312
  Receipt Date: 20240312
  Transmission Date: 20240410
  Serious: Yes (Other)
  Sender: FDA-Public Use
  Company Number: CA-TAKEDA-2016TUS020855

PATIENT
  Age: 48 Year
  Sex: Female

DRUGS (9)
  1. VEDOLIZUMAB [Suspect]
     Active Substance: VEDOLIZUMAB
     Indication: Crohn^s disease
     Dosage: 300 MILLIGRAM
     Route: 042
     Dates: start: 20160613
  2. VEDOLIZUMAB [Suspect]
     Active Substance: VEDOLIZUMAB
     Dosage: 300 MILLIGRAM
     Route: 042
  3. FENTANYL [Concomitant]
     Active Substance: FENTANYL\FENTANYL CITRATE
     Dosage: 25 MICROGRAM, Q72H
     Dates: start: 2009
  4. LANSOPRAZOLE [Concomitant]
     Active Substance: LANSOPRAZOLE
     Indication: Chest discomfort
     Dosage: 30 MILLIGRAM, BID
  5. VIOKACE [Concomitant]
     Active Substance: PANCRELIPASE AMYLASE\PANCRELIPASE LIPASE\PANCRELIPASE PROTEASE
     Dosage: UNK, BID
  6. ACETAMINOPHEN [Concomitant]
     Active Substance: ACETAMINOPHEN
     Dosage: 20 MILLILITER, QD
     Dates: start: 1997
  7. INNOHEP [Concomitant]
     Active Substance: TINZAPARIN SODIUM
     Dosage: UNK, QD
     Route: 050
     Dates: start: 2010
  8. ENBREL [Concomitant]
     Active Substance: ETANERCEPT
     Indication: Arthritis
     Dosage: UNK UNK, 1/WEEK
     Route: 050
  9. VITAMIN B12 [Concomitant]
     Active Substance: CYANOCOBALAMIN
     Dosage: 1 MILLILITER, Q2WEEKS
     Route: 050
     Dates: start: 1996

REACTIONS (5)
  - Vomiting [Unknown]
  - Nausea [Unknown]
  - Abdominal discomfort [Unknown]
  - Illness [Unknown]
  - Headache [Unknown]

NARRATIVE: CASE EVENT DATE: 20161114
